FAERS Safety Report 4606172-8 (Version None)
Quarter: 2005Q1

REPORT INFORMATION
  Report Type: 
  Country: None (occurrence: None)
  Receive Date: 20050311
  Receipt Date: 20050301
  Transmission Date: 20050727
  Serious: Yes (Other)
  Sender: FDA-Public Use
  Company Number: DE-BRISTOL-MYERS SQUIBB COMPANY-12883294

PATIENT
  Sex: Female

DRUGS (2)
  1. TAXOL [Suspect]
     Indication: OVARIAN CANCER
  2. CARBOPLATIN [Suspect]
     Indication: OVARIAN CANCER

REACTIONS (3)
  - AMNESIA [None]
  - APHASIA [None]
  - MENTAL IMPAIRMENT [None]
